FAERS Safety Report 7006138-7 (Version None)
Quarter: 2010Q3

REPORT INFORMATION
  Report Type: 
  Country: None (occurrence: None)
  Receive Date: 20100921
  Receipt Date: 20100909
  Transmission Date: 20110219
  Serious: Yes (Hospitalization)
  Sender: FDA-Public Use
  Company Number: JP-PFIZER INC-2010112657

PATIENT
  Age: 80 Year
  Sex: Male
  Weight: 46.6 kg

DRUGS (10)
  1. CELECOX [Suspect]
     Indication: RHEUMATOID ARTHRITIS
     Dosage: 100 MG, 2X/DAY
     Route: 048
     Dates: start: 20100525, end: 20100726
  2. PROGRAF [Suspect]
     Indication: RHEUMATOID ARTHRITIS
     Dosage: 1.5 MG, UNKNOWN/D
     Route: 048
     Dates: start: 20100525, end: 20100628
  3. PROGRAF [Suspect]
     Dosage: 2 MG, UID/1X/DAY
     Route: 048
     Dates: start: 20100629, end: 20100722
  4. TAKEPRON [Suspect]
     Indication: PROPHYLAXIS AGAINST GASTROINTESTINAL ULCER
     Dosage: 15 MG, UID/1X/DAY
     Route: 048
     Dates: start: 20100525, end: 20100726
  5. MICAFUNGIN [Suspect]
     Indication: INTERSTITIAL LUNG DISEASE
     Dosage: 75 MG, 1X/DAY, UID
     Route: 065
     Dates: start: 20100728, end: 20100805
  6. RISEDRONATE SODIUM [Concomitant]
     Dosage: UNK
     Dates: start: 20070119, end: 20100726
  7. PREDNISOLONE [Concomitant]
     Dosage: 4 MG, 1X/DAY
  8. PREDNISOLONE [Concomitant]
     Dosage: 8 MG, 1X/DAY
     Dates: start: 20100525, end: 20100628
  9. PREDNISOLONE [Concomitant]
     Dosage: 7 MG, 1X/DAY
     Dates: start: 20100629
  10. PREDNISOLONE [Concomitant]
     Dosage: UNK
     Dates: start: 20100726

REACTIONS (3)
  - BLOOD BETA-D-GLUCAN INCREASED [None]
  - INTERSTITIAL LUNG DISEASE [None]
  - PYREXIA [None]
